FAERS Safety Report 13749331 (Version 1)
Quarter: 2017Q3

REPORT INFORMATION
  Report Type: Spontaneous
  Country: US (occurrence: US)
  Receive Date: 20170713
  Receipt Date: 20170713
  Transmission Date: 20171127
  Serious: No
  Sender: FDA-Public Use
  Company Number: None

PATIENT
  Age: 59 Year
  Sex: Female
  Weight: 54.5 kg

DRUGS (1)
  1. TALTZ [Suspect]
     Active Substance: IXEKIZUMAB
     Indication: PSORIASIS
     Dosage: 2X80MG INJECTION ONCE SUBCUTANEOUS
     Route: 058
     Dates: start: 20170630

REACTIONS (1)
  - Injection site discolouration [None]

NARRATIVE: CASE EVENT DATE: 20170630
